FAERS Safety Report 20053473 (Version 2)
Quarter: 2022Q1

REPORT INFORMATION
  Report Type: Spontaneous
  Country: US (occurrence: US)
  Receive Date: 20211110
  Receipt Date: 20220213
  Transmission Date: 20220423
  Serious: Yes (Death, Congenital Anomaly)
  Sender: FDA-Public Use
  Company Number: US-TEVA-2021-US-1976291

PATIENT
  Age: 73 Year
  Sex: Female

DRUGS (1)
  1. ADRUCIL [Suspect]
     Active Substance: FLUOROURACIL
     Dosage: 96 HR DRIP
     Route: 065
     Dates: start: 20140609

REACTIONS (6)
  - Dihydropyrimidine dehydrogenase deficiency [Fatal]
  - Cardiac arrest [Fatal]
  - Lactic acidosis [Fatal]
  - Mucosal inflammation [Fatal]
  - Pancytopenia [Fatal]
  - Encephalopathy [Fatal]
